FAERS Safety Report 12915478 (Version 1)
Quarter: 2016Q4

REPORT INFORMATION
  Report Type: Spontaneous
  Country: US (occurrence: US)
  Receive Date: 20161106
  Receipt Date: 20161106
  Transmission Date: 20170207
  Serious: No
  Sender: FDA-Public Use
  Company Number: US-RELYPSA-RLY2016001817

PATIENT
  Sex: Male

DRUGS (15)
  1. EFFIENT [Concomitant]
     Active Substance: PRASUGREL HYDROCHLORIDE
  2. HYDROCHLOROTHIAZIDE. [Concomitant]
     Active Substance: HYDROCHLOROTHIAZIDE
  3. AZOR [Concomitant]
     Active Substance: AMLODIPINE BESYLATE\OLMESARTAN MEDOXOMIL
  4. FOLIC ACID. [Concomitant]
     Active Substance: FOLIC ACID
  5. VELTASSA [Suspect]
     Active Substance: PATIROMER
     Indication: HYPERKALAEMIA
     Dosage: 8.4 G, QD
     Route: 048
     Dates: start: 20160129, end: 2016
  6. LORAZEPAM. [Concomitant]
     Active Substance: LORAZEPAM
  7. MYRBETRIQ [Concomitant]
     Active Substance: MIRABEGRON
  8. ALLOPURINOL. [Concomitant]
     Active Substance: ALLOPURINOL
  9. ASPIRIN. [Concomitant]
     Active Substance: ASPIRIN
  10. TAMSULOSIN HCL [Concomitant]
     Active Substance: TAMSULOSIN
  11. ATORVASTATIN CALCIUM. [Concomitant]
     Active Substance: ATORVASTATIN CALCIUM
  12. VELTASSA [Suspect]
     Active Substance: PATIROMER
     Indication: CHRONIC KIDNEY DISEASE
     Dosage: 8.4 G, QD
     Route: 048
     Dates: start: 2016
  13. RANITIDINE HCL [Concomitant]
     Active Substance: RANITIDINE HYDROCHLORIDE
  14. FUROSEMIDE. [Concomitant]
     Active Substance: FUROSEMIDE
  15. ADVAIR HFA [Concomitant]
     Active Substance: FLUTICASONE PROPIONATE\SALMETEROL XINAFOATE

REACTIONS (5)
  - Abdominal discomfort [Not Recovered/Not Resolved]
  - Abdominal pain upper [Not Recovered/Not Resolved]
  - Constipation [Not Recovered/Not Resolved]
  - Nausea [Not Recovered/Not Resolved]
  - Drug dose omission [Unknown]

NARRATIVE: CASE EVENT DATE: 2016
